FAERS Safety Report 4449233-9 (Version None)
Quarter: 2004Q3

REPORT INFORMATION
  Report Type: 
  Country: None (occurrence: None)
  Receive Date: 20040909
  Receipt Date: 20040824
  Transmission Date: 20050211
  Serious: Yes (Life-Threatening, Hospitalization, Other)
  Sender: FDA-Public Use
  Company Number: US_990827364

PATIENT
  Age: 58 Year
  Sex: Female
  Weight: 68 kg

DRUGS (18)
  1. HUMALOG [Suspect]
     Indication: DIABETES MELLITUS INSULIN-DEPENDENT
     Dosage: 6 U DAY
  2. HUMULIN U [Suspect]
     Indication: DIABETES MELLITUS INSULIN-DEPENDENT
     Dosage: 13 U/DAY
  3. PROZAC [Suspect]
  4. INSULIN [Suspect]
     Dates: start: 19640101
  5. EQUAGESIC [Concomitant]
  6. CODEINE [Concomitant]
  7. LASIX [Concomitant]
  8. PREMARIN [Concomitant]
  9. PROVERA [Concomitant]
  10. THYROID TAB [Concomitant]
  11. HYCODAN [Concomitant]
  12. POTASSIUM [Concomitant]
  13. PYRIDOXINE [Concomitant]
  14. VITAMIN E [Concomitant]
  15. ASCORBIC ACID [Concomitant]
  16. CALCIUM [Concomitant]
  17. MULTI-VITAMIN [Concomitant]
  18. LANTUS [Concomitant]

REACTIONS (14)
  - ANKLE FRACTURE [None]
  - APNOEA [None]
  - BALANCE DISORDER [None]
  - BLINDNESS [None]
  - BLOOD GLUCOSE INCREASED [None]
  - CATARACT [None]
  - COUGH [None]
  - DIABETIC RETINOPATHY [None]
  - FEELING ABNORMAL [None]
  - NEUROPATHY [None]
  - PANIC ATTACK [None]
  - PNEUMONIA [None]
  - RETINAL DISORDER [None]
  - RIB FRACTURE [None]
